FAERS Safety Report 5036017-6 (Version None)
Quarter: 2006Q2

REPORT INFORMATION
  Report Type: 
  Country: None (occurrence: None)
  Receive Date: 20060526
  Receipt Date: 20051017
  Transmission Date: 20061013
  Serious: Yes (Disabling)
  Sender: FDA-Public Use
  Company Number: PHEH2005US10908

PATIENT
  Age: 73 Year
  Sex: Male
  Weight: 84.4 kg

DRUGS (1)
  1. DESFERAL [Suspect]
     Indication: BLOOD IRON INCREASED
     Dosage: 2 G QD
     Dates: start: 20050301, end: 20050927

REACTIONS (5)
  - BLINDNESS [None]
  - NIGHT BLINDNESS [None]
  - PHOTOPSIA [None]
  - VISION BLURRED [None]
  - VISUAL ACUITY REDUCED [None]
